FAERS Safety Report 14075377 (Version 2)
Quarter: 2018Q1

REPORT INFORMATION
  Report Type: Spontaneous
  Country: JP (occurrence: JP)
  Receive Date: 20171010
  Receipt Date: 20180226
  Transmission Date: 20180508
  Serious: Yes (Hospitalization, Other)
  Sender: FDA-Public Use
  Company Number: JP-ALLERGAN-1648516

PATIENT
  Age: 45 Year
  Sex: Male
  Weight: 62.1 kg

DRUGS (1)
  1. MESALAZINE UNK [Suspect]
     Active Substance: MESALAMINE
     Indication: COLITIS ULCERATIVE
     Dosage: 2.4 G, QD
     Route: 048

REACTIONS (1)
  - Eosinophilic pneumonia [Recovering/Resolving]
